FAERS Safety Report 9479273 (Version 1)
Quarter: 2013Q3

REPORT INFORMATION
  Report Type: Spontaneous
  Country: EG (occurrence: EG)
  Receive Date: 20130827
  Receipt Date: 20130827
  Transmission Date: 20140515
  Serious: Yes (Other)
  Sender: FDA-Public Use
  Company Number: EG-MYLANLABS-2013S1018309

PATIENT
  Age: 6 Year
  Sex: 0

DRUGS (1)
  1. VANCOMYCIN [Suspect]
     Indication: BRONCHOPNEUMONIA
     Route: 050

REACTIONS (2)
  - Red man syndrome [Recovered/Resolved]
  - Wrong technique in drug usage process [Recovered/Resolved]
